FAERS Safety Report 4899889-1 (Version None)
Quarter: 2006Q1

REPORT INFORMATION
  Report Type: 
  Country: None (occurrence: None)
  Receive Date: 20060118
  Receipt Date: 20050919
  Transmission Date: 20060701
  Serious: No
  Sender: FDA-Public Use
  Company Number: 2005001831

PATIENT
  Sex: Male

DRUGS (10)
  1. TARCEVA [Suspect]
     Indication: LUNG NEOPLASM MALIGNANT
     Dosage: 150 MG (QD), ORAL
     Route: 048
     Dates: start: 20050917
  2. ZESTRIL [Concomitant]
  3. PLAVIX [Concomitant]
  4. ALBUTEROL [Concomitant]
  5. TERAZOSIN (TERAZOSIN) [Concomitant]
  6. ZOCOR [Concomitant]
  7. COREG [Concomitant]
  8. OXYGEN (OXYGEN) [Concomitant]
  9. VITAMIN E [Concomitant]
  10. VITAMIN B6 [Concomitant]

REACTIONS (3)
  - DIARRHOEA [None]
  - DIZZINESS [None]
  - FAECES DISCOLOURED [None]
